FAERS Safety Report 9994862 (Version 1)
Quarter: 2014Q1

REPORT INFORMATION
  Report Type: Spontaneous
  Country: US (occurrence: None)
  Receive Date: 20140127
  Receipt Date: 20140127
  Transmission Date: 20141002
  Serious: Yes (Other)
  Sender: FDA-Public Use
  Company Number: 1212294

PATIENT
  Age: 70 Year
  Sex: Male

DRUGS (1)
  1. RITUXAN (RITUXIMAB) [Suspect]
     Indication: PRODUCT USED FOR UNKNOWN INDICATION
     Dosage: MOST RECENT DOSE ON 25/MAR/2013
     Route: 042

REACTIONS (7)
  - Infusion related reaction [None]
  - Hypotension [None]
  - Pyrexia [None]
  - Chills [None]
  - Back pain [None]
  - Mental status changes [None]
  - Pallor [None]
